FAERS Safety Report 19415321 (Version 1)
Quarter: 2021Q2

REPORT INFORMATION
  Report Type: Spontaneous
  Country: LV (occurrence: LV)
  Receive Date: 20210614
  Receipt Date: 20210614
  Transmission Date: 20210717
  Serious: Yes (Other)
  Sender: FDA-Public Use
  Company Number: LV-ASTRAZENECA-2021A481029

PATIENT
  Age: 78 Year
  Sex: Female

DRUGS (9)
  1. VAXZEVRIA [Suspect]
     Active Substance: AZD-1222
     Indication: COVID-19 IMMUNISATION
     Dosage: 1 DOSE RECEIVED
     Route: 030
     Dates: start: 20210326
  2. TELASSMO [Concomitant]
     Indication: BLOOD PRESSURE INCREASED
  3. ASPERIN [Concomitant]
  4. THYROXINE [Concomitant]
     Active Substance: LEVOTHYROXINE
     Indication: THYROID DISORDER
  5. MONCAST [Concomitant]
  6. ROSUVASTATIN. [Suspect]
     Active Substance: ROSUVASTATIN
     Indication: BLOOD CHOLESTEROL INCREASED
     Route: 048
  7. CHOLESTEROL PILLS [Suspect]
     Active Substance: UNSPECIFIED INGREDIENT
  8. VAXZEVRIA [Suspect]
     Active Substance: AZD-1222
     Indication: COVID-19 IMMUNISATION
     Dosage: 1 DOSE RECEIVED
     Route: 030
     Dates: start: 20210602
  9. CONCOR [Concomitant]
     Active Substance: BISOPROLOL FUMARATE

REACTIONS (11)
  - Feeling cold [Unknown]
  - Pruritus [Not Recovered/Not Resolved]
  - Abdominal pain upper [Recovered/Resolved]
  - Insomnia [Unknown]
  - Acarodermatitis [Not Recovered/Not Resolved]
  - Liver disorder [Unknown]
  - Acne [Not Recovered/Not Resolved]
  - Nausea [Recovered/Resolved]
  - Rash [Not Recovered/Not Resolved]
  - Asthenia [Recovered/Resolved]
  - Wound [Not Recovered/Not Resolved]
